FAERS Safety Report 9660484 (Version 1)
Quarter: 2013Q4

REPORT INFORMATION
  Report Type: Spontaneous
  Country: GB (occurrence: GB)
  Receive Date: 20131031
  Receipt Date: 20131031
  Transmission Date: 20140711
  Serious: Yes (Hospitalization)
  Sender: FDA-Public Use
  Company Number: GB-MERCK-1310GBR011685

PATIENT
  Age: 94 Year
  Sex: Male

DRUGS (12)
  1. ALENDRONATE SODIUM [Suspect]
     Dosage: 70 MG, 1/1 WEEKS
     Route: 048
  2. WARFARIN SODIUM [Suspect]
     Dosage: 3 MG, UNK
     Route: 048
     Dates: end: 20131007
  3. SIMVASTATIN [Concomitant]
     Dosage: UNK
     Route: 048
  4. OMEPRAZOLE [Concomitant]
     Dosage: 10 MG, UNK
     Route: 048
  5. ATENOLOL [Concomitant]
     Dosage: UNK
  6. BUMETANIDE [Concomitant]
     Dosage: UNK
  7. CALCIUM CARBONATE [Concomitant]
     Dosage: UNK
  8. ACETAMINOPHEN (+) CODEINE PHOSPHATE [Concomitant]
  9. FERROUS FUMARATE [Concomitant]
  10. GTN [Concomitant]
  11. LACTULOSE [Concomitant]
  12. RAMIPRIL [Concomitant]

REACTIONS (5)
  - Gastrointestinal haemorrhage [Recovering/Resolving]
  - Haematemesis [Unknown]
  - Hiatus hernia [Unknown]
  - Varices oesophageal [Unknown]
  - Melaena [Unknown]
